FAERS Safety Report 5443543-4 (Version None)
Quarter: 2007Q3

REPORT INFORMATION
  Report Type: 
  Country: None (occurrence: None)
  Receive Date: 20070905
  Receipt Date: 20070827
  Transmission Date: 20080115
  Serious: Yes (Other)
  Sender: FDA-Public Use
  Company Number: US-ROCHE-513670

PATIENT
  Sex: Male

DRUGS (3)
  1. CELLCEPT [Suspect]
     Route: 065
  2. CELLCEPT [Suspect]
     Route: 065
  3. CELLCEPT [Suspect]
     Route: 065

REACTIONS (2)
  - DIVERTICULAR PERFORATION [None]
  - PEMPHIGUS [None]
